FAERS Safety Report 25098391 (Version 1)
Quarter: 2025Q1

REPORT INFORMATION
  Report Type: Spontaneous
  Country: RO (occurrence: RO)
  Receive Date: 20250320
  Receipt Date: 20250320
  Transmission Date: 20250409
  Serious: Yes (Other)
  Sender: TAKEDA
  Company Number: RO-TAKEDA-2025TUS026492

PATIENT
  Age: 56 Year
  Sex: Male

DRUGS (1)
  1. MARIBAVIR [Suspect]
     Active Substance: MARIBAVIR
     Indication: Product used for unknown indication

REACTIONS (3)
  - Cytomegalovirus gastroenteritis [Unknown]
  - Pneumonia cytomegaloviral [Unknown]
  - Hypersensitivity [Unknown]
